FAERS Safety Report 7041677-4 (Version None)
Quarter: 2010Q4

REPORT INFORMATION
  Report Type: 
  Country: None (occurrence: None)
  Receive Date: 20101007
  Receipt Date: 20100922
  Transmission Date: 20110411
  Serious: Yes (Hospitalization)
  Sender: FDA-Public Use
  Company Number: 2007-01087FE

PATIENT
  Age: 9 Year
  Sex: Female

DRUGS (1)
  1. SOMATROPIN (SOMATROPIN) INJECTION, INJECTION [Suspect]
     Indication: GROWTH HORMONE DEFICIENCY
     Dosage: 6 MG 1X/WEEK, NI
     Route: 058

REACTIONS (4)
  - BENIGN INTRACRANIAL HYPERTENSION [None]
  - METABOLIC ACIDOSIS [None]
  - NO THERAPEUTIC RESPONSE [None]
  - PAPILLOEDEMA [None]
